FAERS Safety Report 14113721 (Version 1)
Quarter: 2017Q4

REPORT INFORMATION
  Report Type: Spontaneous
  Country: US (occurrence: US)
  Receive Date: 20171023
  Receipt Date: 20171023
  Transmission Date: 20180321
  Serious: Yes (Disabling)
  Sender: FDA-Public Use
  Company Number: None

PATIENT
  Age: 86 Year
  Sex: Female
  Weight: 67.5 kg

DRUGS (8)
  1. CADUET [Concomitant]
     Active Substance: AMLODIPINE BESYLATE\ATORVASTATIN CALCIUM
  2. LOSARTAN. [Concomitant]
     Active Substance: LOSARTAN
  3. COREG [Concomitant]
     Active Substance: CARVEDILOL
  4. VITAMIN B [Concomitant]
     Active Substance: VITAMIN B
  5. PROLIA [Suspect]
     Active Substance: DENOSUMAB
     Indication: DRUG THERAPY
     Route: 058
     Dates: start: 20170616
  6. PLAQUENIL [Concomitant]
     Active Substance: HYDROXYCHLOROQUINE SULFATE
  7. GABAPENTIN. [Concomitant]
     Active Substance: GABAPENTIN
  8. VITAMIN D [Concomitant]
     Active Substance: CHOLECALCIFEROL

REACTIONS (3)
  - Groin pain [None]
  - Pain in extremity [None]
  - Arthralgia [None]

NARRATIVE: CASE EVENT DATE: 20170616
